FAERS Safety Report 4611170-4 (Version None)
Quarter: 2005Q1

REPORT INFORMATION
  Report Type: 
  Country: None (occurrence: None)
  Receive Date: 20050315
  Receipt Date: 20050315
  Transmission Date: 20050727
  Serious: Yes (Death, Hospitalization)
  Sender: FDA-Public Use
  Company Number: None

PATIENT
  Sex: Male
  Weight: 73.9363 kg

DRUGS (9)
  1. AMIODARONE 400MG TAB [Suspect]
     Indication: ATRIAL FIBRILLATION
     Dosage: 400MG PO SEE IMAGE
     Route: 048
     Dates: start: 20041231
  2. AMIODARONE 400MG TAB [Suspect]
     Indication: ATRIAL FIBRILLATION
     Dosage: 400MG PO SEE IMAGE
     Route: 048
     Dates: start: 20050101
  3. AMIODARONE 400MG TAB [Suspect]
     Indication: ATRIAL FIBRILLATION
     Dosage: 400MG PO SEE IMAGE
     Route: 048
     Dates: start: 20050102
  4. AMIODARONE 400MG TAB [Suspect]
     Indication: ATRIAL FIBRILLATION
     Dosage: 400MG PO SEE IMAGE
     Route: 048
     Dates: start: 20050103
  5. AMIODARONE 400MG TAB [Suspect]
     Indication: ATRIAL FIBRILLATION
     Dosage: 400MG PO SEE IMAGE
     Route: 048
     Dates: start: 20050104
  6. ASPIRIN [Concomitant]
  7. LOPRESSOR [Concomitant]
  8. LINEZOLID [Concomitant]
  9. RAMIPRIL [Concomitant]

REACTIONS (2)
  - DRUG TOXICITY [None]
  - PNEUMONIA LIPOID [None]
